FAERS Safety Report 6122496-X (Version None)
Quarter: 2009Q1

REPORT INFORMATION
  Report Type: 
  Country: None (occurrence: None)
  Receive Date: 20090318
  Receipt Date: 20081229
  Transmission Date: 20090719
  Serious: No
  Sender: FDA-Public Use
  Company Number: US-ASTRAZENECA-2008UW28917

PATIENT
  Age: 68 Year
  Sex: Female

DRUGS (4)
  1. SYMBICORT [Suspect]
     Indication: CHRONIC OBSTRUCTIVE PULMONARY DISEASE
     Dosage: 2 DAYS, 2 PUFFS DAILY
     Route: 055
  2. SYMBICORT [Suspect]
     Indication: ASTHMA
     Dosage: 2 DAYS, 2 PUFFS DAILY
     Route: 055
  3. PLAVIX [Concomitant]
  4. ALBUTEROL [Concomitant]

REACTIONS (2)
  - DYSPNOEA [None]
  - VOMITING [None]
